FAERS Safety Report 6673146-5 (Version None)
Quarter: 2010Q2

REPORT INFORMATION
  Report Type: 
  Country: None (occurrence: None)
  Receive Date: 20100408
  Receipt Date: 20100407
  Transmission Date: 20101027
  Serious: Yes (Other)
  Sender: FDA-Public Use
  Company Number: CHPA2010CH02509

PATIENT
  Sex: Female

DRUGS (1)
  1. OTRIVIN MENTHOL (NCH) [Suspect]
     Dosage: UNK,UNK
     Route: 045
     Dates: start: 20060101

REACTIONS (3)
  - DRUG DEPENDENCE [None]
  - INTENTIONAL DRUG MISUSE [None]
  - NO ADVERSE EVENT [None]
